FAERS Safety Report 9524378 (Version 1)
Quarter: 2013Q3

REPORT INFORMATION
  Report Type: Spontaneous
  Country: CN (occurrence: None)
  Receive Date: 20130912
  Receipt Date: 20130912
  Transmission Date: 20140515
  Serious: Yes (Other)
  Sender: FDA-Public Use
  Company Number: 2013P1018974

PATIENT
  Age: 8 Year
  Sex: Female

DRUGS (1)
  1. METHIMAZOLE [Suspect]
     Indication: THYROID DISORDER

REACTIONS (4)
  - Haematuria [None]
  - Proteinuria [None]
  - Renal necrosis [None]
  - Anti-neutrophil cytoplasmic antibody positive vasculitis [None]
